FAERS Safety Report 8225457-X (Version None)
Quarter: 2012Q1

REPORT INFORMATION
  Report Type: 
  Country: None (occurrence: None)
  Receive Date: 20120321
  Receipt Date: 20120308
  Transmission Date: 20120608
  Serious: Yes (Hospitalization)
  Sender: FDA-Public Use
  Company Number: FR-AMGEN-FRASP2012016173

PATIENT
  Age: 38 Year
  Sex: Female

DRUGS (5)
  1. PREDNISONE TAB [Concomitant]
     Dosage: UNK
     Dates: start: 20040101
  2. ACETAMINOPHEN [Concomitant]
     Dosage: UNK
     Dates: start: 20040101
  3. ENBREL [Suspect]
     Indication: PRODUCT USED FOR UNKNOWN INDICATION
     Dosage: 50 MG, WEEKLY
     Route: 058
     Dates: start: 20040101, end: 20110101
  4. TRAMADOL HCL [Concomitant]
     Dosage: UNK
     Dates: start: 20110101
  5. NEXIUM [Concomitant]
     Dosage: UNK
     Dates: start: 20040101

REACTIONS (1)
  - THYROID CANCER [None]
